FAERS Safety Report 12589844 (Version 1)
Quarter: 2016Q3

REPORT INFORMATION
  Report Type: Spontaneous
  Country: US (occurrence: US)
  Receive Date: 20160725
  Receipt Date: 20160725
  Transmission Date: 20161109
  Serious: No
  Sender: FDA-Public Use
  Company Number: US-B.I. PHARMACEUTICALS,INC./RIDGEFIELD-2016-BI-44440BP

PATIENT
  Sex: Male
  Weight: 147 kg

DRUGS (3)
  1. SPIRIVA [Suspect]
     Active Substance: TIOTROPIUM BROMIDE MONOHYDRATE
     Dosage: 36 MCG
     Route: 055
     Dates: start: 2006, end: 2009
  2. SPIRIVA [Suspect]
     Active Substance: TIOTROPIUM BROMIDE MONOHYDRATE
     Dosage: 18 MCG
     Route: 055
     Dates: start: 2009, end: 201603
  3. SPIRIVA [Suspect]
     Active Substance: TIOTROPIUM BROMIDE MONOHYDRATE
     Indication: CHRONIC OBSTRUCTIVE PULMONARY DISEASE
     Dosage: 18 MCG
     Route: 055
     Dates: start: 2004, end: 2006

REACTIONS (4)
  - Dyspnoea [Not Recovered/Not Resolved]
  - Weight increased [Not Recovered/Not Resolved]
  - Oedema peripheral [Not Recovered/Not Resolved]
  - Incorrect dosage administered [Recovered/Resolved]

NARRATIVE: CASE EVENT DATE: 2006
